FAERS Safety Report 13354742 (Version 1)
Quarter: 2017Q1

REPORT INFORMATION
  Report Type: Spontaneous
  Country: US (occurrence: US)
  Receive Date: 20170320
  Receipt Date: 20170320
  Transmission Date: 20170429
  Serious: Yes (Hospitalization)
  Sender: FDA-Public Use
  Company Number: None

PATIENT
  Age: 82 Year
  Sex: Female
  Weight: 63.6 kg

DRUGS (2)
  1. ATORVASTATIN [Suspect]
     Active Substance: ATORVASTATIN
     Indication: SURGERY
     Route: 048
     Dates: start: 20150202, end: 20160104
  2. ATORVASTATIN [Suspect]
     Active Substance: ATORVASTATIN
     Indication: CARDIOVASCULAR DISORDER
     Route: 048
     Dates: start: 20150202, end: 20160104

REACTIONS (4)
  - Asthenia [None]
  - Blood creatine phosphokinase increased [None]
  - Urinary tract infection [None]
  - Ataxia [None]

NARRATIVE: CASE EVENT DATE: 20160104
